FAERS Safety Report 5238536-6 (Version None)
Quarter: 2007Q1

REPORT INFORMATION
  Report Type: 
  Country: None (occurrence: None)
  Receive Date: 20070215
  Receipt Date: 20070206
  Transmission Date: 20070707
  Serious: Yes (Hospitalization)
  Sender: FDA-Public Use
  Company Number: FR-GLAXOSMITHKLINE-B0457967A

PATIENT
  Age: 22 Year
  Sex: Female

DRUGS (2)
  1. ZYBAN [Suspect]
     Dosage: 60TABS SINGLE DOSE
     Route: 048
  2. TERCIAN [Suspect]
     Indication: MENTAL DISORDER
     Dosage: 1BT SINGLE DOSE
     Route: 048

REACTIONS (6)
  - CARDIAC ARREST [None]
  - CONFUSIONAL STATE [None]
  - ECCHYMOSIS [None]
  - INCORRECT DOSE ADMINISTERED [None]
  - INTENTIONAL OVERDOSE [None]
  - SUICIDE ATTEMPT [None]
